FAERS Safety Report 7383449-7 (Version None)
Quarter: 2011Q1

REPORT INFORMATION
  Report Type: 
  Country: None (occurrence: None)
  Receive Date: 20110324
  Receipt Date: 20110324
  Transmission Date: 20110831
  Serious: Yes (Other)
  Sender: FDA-Public Use
  Company Number: None

PATIENT
  Age: 16 Year
  Sex: Male
  Weight: 65.7716 kg

DRUGS (2)
  1. PROMETHAZINE [Suspect]
     Indication: NAUSEA
     Dosage: 1 TABLET 4-6 HOURS PO
     Route: 048
     Dates: start: 20110318, end: 20110318
  2. PROMETHAZINE [Suspect]
     Indication: VOMITING
     Dosage: 1 TABLET 4-6 HOURS PO
     Route: 048
     Dates: start: 20110318, end: 20110318

REACTIONS (10)
  - FALL [None]
  - PUPILLARY DISORDER [None]
  - DIZZINESS [None]
  - NAUSEA [None]
  - VOMITING [None]
  - SYNCOPE [None]
  - TREMOR [None]
  - FEELING HOT [None]
  - HEAD INJURY [None]
  - VISION BLURRED [None]
